FAERS Safety Report 7205878-4 (Version None)
Quarter: 2010Q4

REPORT INFORMATION
  Report Type: 
  Country: None (occurrence: None)
  Receive Date: 20101231
  Receipt Date: 20101217
  Transmission Date: 20110411
  Serious: Yes (Hospitalization)
  Sender: FDA-Public Use
  Company Number: FR-CELGENEUS-056-21880-10122183

PATIENT
  Sex: Male

DRUGS (3)
  1. REVLIMID [Suspect]
     Route: 048
     Dates: start: 20101115, end: 20101130
  2. REVLIMID [Suspect]
     Route: 048
     Dates: start: 20101227
  3. NEORECORMON [Suspect]
     Dosage: 600000UI
     Route: 065
     Dates: start: 20101115

REACTIONS (1)
  - PERITONITIS [None]
